FAERS Safety Report 8296405-1 (Version None)
Quarter: 2012Q2

REPORT INFORMATION
  Report Type: 
  Country: None (occurrence: None)
  Receive Date: 20120418
  Receipt Date: 20120411
  Transmission Date: 20120825
  Serious: Yes (Hospitalization, Other)
  Sender: FDA-Public Use
  Company Number: US-BRISTOL-MYERS SQUIBB COMPANY-16515199

PATIENT
  Age: 79 Year
  Sex: Male

DRUGS (10)
  1. MDX-1106 [Suspect]
     Indication: MALIGNANT MELANOMA
     Route: 042
     Dates: start: 20120213
  2. IPILIMUMAB [Suspect]
     Indication: MALIGNANT MELANOMA
     Route: 042
     Dates: start: 20120213
  3. SIMVASTATIN [Concomitant]
     Indication: HYPERCHOLESTEROLAEMIA
     Route: 048
     Dates: start: 20060101
  4. OXYCODONE HCL [Concomitant]
     Indication: PAIN
     Dosage: PRN FOR PAIN
     Route: 048
     Dates: start: 20120119, end: 20120220
  5. MIRALAX [Concomitant]
     Dosage: 1DF= 1CAPFUL.
     Route: 048
     Dates: start: 20120208
  6. PEPCID AC [Concomitant]
     Route: 048
     Dates: start: 20120228
  7. SENNA [Concomitant]
     Dosage: 3TABS:19JAN12-8FEB12 2 TABS:8FEB12-ONG
     Route: 048
     Dates: start: 20120118
  8. ASPIRIN [Concomitant]
     Indication: ANTICOAGULANT THERAPY
     Dosage: 81 MG
     Route: 048
     Dates: start: 20010101
  9. LISINOPRIL [Concomitant]
     Indication: HYPERTENSION
     Route: 048
     Dates: start: 20060101
  10. COLACE [Concomitant]
     Route: 048
     Dates: start: 20120208

REACTIONS (2)
  - UVEITIS [None]
  - PNEUMONITIS [None]
